FAERS Safety Report 7394372-6 (Version None)
Quarter: 2011Q2

REPORT INFORMATION
  Report Type: 
  Country: None (occurrence: None)
  Receive Date: 20110405
  Receipt Date: 20110323
  Transmission Date: 20111010
  Serious: Yes (Hospitalization)
  Sender: FDA-Public Use
  Company Number: US-ELI_LILLY_AND_COMPANY-US201010000081

PATIENT
  Sex: Female

DRUGS (6)
  1. FORTEO [Suspect]
     Indication: OSTEOPOROSIS
     Dosage: 20 UG, DAILY (1/D)
     Dates: start: 20100913
  2. FORTEO [Suspect]
     Dosage: 20 UG, DAILY (1/D)
  3. ANTIBIOTICS [Concomitant]
  4. FORTEO [Suspect]
     Dosage: 20 UG, QD
  5. FORTEO [Suspect]
     Dosage: 20 UG, DAILY (1/D)
     Route: 065
  6. FORTEO [Suspect]
     Dosage: 20 UG, DAILY (1/D)
     Route: 065

REACTIONS (10)
  - ARTHRITIS [None]
  - FATIGUE [None]
  - NAUSEA [None]
  - HEADACHE [None]
  - HEAD INJURY [None]
  - CONTUSION [None]
  - OEDEMA PERIPHERAL [None]
  - MALAISE [None]
  - MUSCLE SPASMS [None]
  - JOINT SWELLING [None]
